FAERS Safety Report 10930117 (Version 2)
Quarter: 2015Q2

REPORT INFORMATION
  Report Type: Report from Study
  Country: US (occurrence: US)
  Receive Date: 20150319
  Receipt Date: 20150422
  Transmission Date: 20150821
  Serious: Yes (Death, Hospitalization, Disabling)
  Sender: FDA-Public Use
  Company Number: US-JNJFOC-20150306768

PATIENT
  Sex: Male
  Weight: 117.94 kg

DRUGS (10)
  1. VASCEPA [Concomitant]
     Active Substance: ETHYL ICOSAPENTATE
     Dosage: 2 TO 4 YEARS
     Route: 065
  2. COREG [Concomitant]
     Active Substance: CARVEDILOL
     Indication: HYPERTENSION
     Dosage: 2 TO 4 YEARS
     Route: 065
  3. ADVIL [Concomitant]
     Active Substance: IBUPROFEN
     Indication: PAIN
     Dosage: 1000/DAY, 2 TO 4 YEARS
     Route: 048
     Dates: end: 201502
  4. STELARA [Suspect]
     Active Substance: USTEKINUMAB
     Indication: PSORIASIS
     Dosage: INITIATED A LITTLE OVER 2 YEARS AGO
     Route: 058
     Dates: start: 2009, end: 201501
  5. ALCOHOL. [Suspect]
     Active Substance: ALCOHOL
     Indication: PRODUCT USED FOR UNKNOWN INDICATION
     Dosage: SEVERAL DRINKS PER WEEK AND DRUNK HEAVILY
     Route: 048
  6. DEPAKOTE [Concomitant]
     Active Substance: DIVALPROEX SODIUM
     Indication: BLOOD PRESSURE INCREASED
     Dosage: 2 TO 4 YEARS
     Route: 065
  7. LISINOPRIL. [Concomitant]
     Active Substance: LISINOPRIL
     Indication: HYPERTENSION
     Dosage: 2 TO 4 YEARS
     Route: 065
  8. DIGOXIN. [Concomitant]
     Active Substance: DIGOXIN
     Indication: BLOOD PRESSURE INCREASED
     Dosage: 2 TO 4 YEARS
     Route: 065
  9. DIGOXIN. [Concomitant]
     Active Substance: DIGOXIN
     Indication: CARDIAC FAILURE CONGESTIVE
     Dosage: 2 TO 4 YEARS
     Route: 065
  10. TYLENOL [Suspect]
     Active Substance: ACETAMINOPHEN
     Indication: PRODUCT USED FOR UNKNOWN INDICATION
     Dosage: COPIOUS AMOUNTS FOR 2 -4 YEARS
     Route: 065

REACTIONS (5)
  - Weight decreased [Unknown]
  - Hepatic failure [Fatal]
  - Depression [Unknown]
  - Cirrhosis alcoholic [Fatal]
  - Chronic kidney disease [Fatal]

NARRATIVE: CASE EVENT DATE: 2014
